FAERS Safety Report 4319366-6 (Version None)
Quarter: 2004Q1

REPORT INFORMATION
  Report Type: 
  Country: None (occurrence: None)
  Receive Date: 20040316
  Receipt Date: 20040303
  Transmission Date: 20041129
  Serious: Yes (Disabling)
  Sender: FDA-Public Use
  Company Number: 2004UW02903

PATIENT
  Age: 58 Year
  Sex: Female
  Weight: 57.1532 kg

DRUGS (4)
  1. CRESTOR [Suspect]
     Indication: BLOOD LACTATE DEHYDROGENASE INCREASED
     Dosage: 10 MG DAILY PO
     Route: 048
     Dates: start: 20031101, end: 20031101
  2. CRESTOR [Suspect]
     Indication: LOW DENSITY LIPOPROTEIN INCREASED
     Dosage: 10 MG DAILY PO
     Route: 048
     Dates: start: 20031101, end: 20031101
  3. LISINOPRIL [Concomitant]
  4. ASPIRIN [Concomitant]

REACTIONS (6)
  - ARTHRALGIA [None]
  - ASTHENIA [None]
  - EYELID PTOSIS [None]
  - FALL [None]
  - MUSCLE CRAMP [None]
  - MYALGIA [None]
